FAERS Safety Report 8772938 (Version 1)
Quarter: 2012Q4

REPORT INFORMATION
  Report Type: 
  Country: DE (occurrence: DE)
  Receive Date: 20120907
  Receipt Date: 20120907
  Transmission Date: 20130627
  Serious: Yes (Life-Threatening)
  Sender: FDA-Public Use
  Company Number: PHHY2012DE077663

PATIENT
  Sex: Male

DRUGS (2)
  1. METHYLPHENIDATE [Suspect]
     Dosage: 10 mg, BID
     Route: 048
  2. METHYLPHENIDATE [Suspect]
     Dosage: 20 mg, QD
     Route: 048

REACTIONS (1)
  - Cardiac arrest [Unknown]
